FAERS Safety Report 5744816-8 (Version None)
Quarter: 2008Q2

REPORT INFORMATION
  Report Type: 
  Country: None (occurrence: None)
  Receive Date: 20080516
  Receipt Date: 20080505
  Transmission Date: 20081010
  Serious: Yes (Other)
  Sender: FDA-Public Use
  Company Number: 310019J08USA

PATIENT
  Sex: Female

DRUGS (3)
  1. GONAL-F [Suspect]
     Indication: ASSISTED FERTILISATION
     Dosage: 225 IU, 2 IN 1 DAYS, SUBCUTANEOUS
     Route: 058
     Dates: start: 20060201, end: 20060201
  2. GONAL-F [Suspect]
     Indication: ASSISTED FERTILISATION
     Dosage: 225 IU, 2 IN 1 DAYS, SUBCUTANEOUS
     Route: 058
     Dates: start: 20050101
  3. GONAL-F [Suspect]
     Indication: ASSISTED FERTILISATION
     Dosage: 225 IU, 2 IN 1 DAYS, SUBCUTANEOUS
     Route: 058
     Dates: start: 20051101

REACTIONS (2)
  - DRUG EXPOSURE DURING PREGNANCY [None]
  - INTRA-UTERINE DEATH [None]
